FAERS Safety Report 8746265 (Version 2)
Quarter: 2012Q4

REPORT INFORMATION
  Report Type: 
  Country: JP (occurrence: JP)
  Receive Date: 20120827
  Receipt Date: 20120829
  Transmission Date: 20130627
  Serious: Yes (Other)
  Sender: FDA-Public Use
  Company Number: JP-JNJFOC-20120807849

PATIENT
  Age: 84 Year
  Sex: Female

DRUGS (6)
  1. TRAMCET [Suspect]
     Indication: PROCTALGIA
     Dosage: 1 per day
     Route: 048
     Dates: start: 20120806, end: 20120809
  2. LOXONIN [Suspect]
     Indication: PRODUCT USED FOR UNKNOWN INDICATION
     Dosage: 3 times per day
     Route: 065
  3. DEPAS [Suspect]
     Indication: PRODUCT USED FOR UNKNOWN INDICATION
     Route: 048
  4. MYSLEE [Concomitant]
     Route: 048
  5. AMLODIN [Concomitant]
     Route: 048
  6. PURSENNID [Concomitant]
     Route: 048

REACTIONS (2)
  - Convulsion [Recovered/Resolved]
  - Myoclonus [Recovered/Resolved]
